FAERS Safety Report 8964115 (Version 1)
Quarter: 2012Q4

REPORT INFORMATION
  Report Type: 
  Country: FR (occurrence: FR)
  Receive Date: 20121213
  Receipt Date: 20121213
  Transmission Date: 20130627
  Serious: Yes (Hospitalization)
  Sender: FDA-Public Use
  Company Number: FR-GLAXOSMITHKLINE-B0850743A

PATIENT
  Age: 48 Year
  Sex: Male

DRUGS (1)
  1. LAMICTAL [Suspect]
     Indication: DEPRESSION
     Route: 048
     Dates: start: 20110328, end: 20110405

REACTIONS (6)
  - Rash [Unknown]
  - Gamma-glutamyltransferase increased [Unknown]
  - Lymphopenia [Recovered/Resolved]
  - Lymphadenopathy [Unknown]
  - Transaminases increased [Unknown]
  - Incorrect dose administered [Unknown]
